FAERS Safety Report 10922386 (Version 1)
Quarter: 2015Q1

REPORT INFORMATION
  Report Type: Spontaneous
  Country: CH (occurrence: CH)
  Receive Date: 20150317
  Receipt Date: 20150317
  Transmission Date: 20150721
  Serious: Yes (Hospitalization)
  Sender: FDA-Public Use
  Company Number: CH-PFIZER INC-2015088523

PATIENT
  Age: 67 Year
  Weight: 82 kg

DRUGS (14)
  1. CYTOSAR [Suspect]
     Active Substance: CYTARABINE
     Indication: ACUTE MYELOID LEUKAEMIA
     Dosage: 420 MG, 1X/DAY
     Route: 042
     Dates: start: 20141128, end: 20141204
  2. ETOPOPHOS [Interacting]
     Active Substance: ETOPOSIDE PHOSPHATE
     Indication: ACUTE MYELOID LEUKAEMIA
     Dosage: 200 MG, 1X/DAY
     Route: 042
     Dates: start: 20141128, end: 20141202
  3. PREDNISONE. [Suspect]
     Active Substance: PREDNISONE
     Dosage: 80 MG, 1X/DAY (1 MG/KG/DAY)
     Route: 048
     Dates: start: 20150121, end: 20150123
  4. KONAKION [Concomitant]
     Active Substance: PHYTONADIONE
     Dosage: UNK, 1X/DAY
     Route: 042
  5. DANCOR [Concomitant]
     Active Substance: NICORANDIL
     Dosage: 10 MG, 2X/DAY
     Route: 048
  6. REDORMIN [Concomitant]
     Dosage: 250 MG, 1X/DAY
     Route: 048
     Dates: start: 20150210
  7. CORVATON [Concomitant]
     Active Substance: MOLSIDOMINE
     Dosage: 4 MG, 1X/DAY
     Route: 048
  8. DAFALGAN [Concomitant]
     Active Substance: ACETAMINOPHEN
     Dosage: 1 G, 1X/DAY
     Route: 048
  9. DISTRANEURIN [Concomitant]
     Active Substance: CLOMETHIAZOLE
     Dosage: 300 MG, 1X/DAY
     Route: 048
     Dates: start: 20150209
  10. TEMESTA [Concomitant]
     Active Substance: LORAZEPAM
     Dosage: 1 MG, 1X/DAY
     Route: 048
  11. CYTOSAR [Interacting]
     Active Substance: CYTARABINE
     Dosage: 2000 MG, 2X/DAY
     Route: 042
     Dates: start: 20141231, end: 20150105
  12. SOLU-MEDROL [Interacting]
     Active Substance: METHYLPREDNISOLONE SODIUM SUCCINATE
     Dosage: 125 MG, 1X/DAY
     Route: 041
     Dates: start: 20141128, end: 20141202
  13. FOLIC ACID. [Concomitant]
     Active Substance: FOLIC ACID
     Dosage: 5 MG, 1X/DAY
     Dates: start: 201411
  14. TENORMIN [Concomitant]
     Active Substance: ATENOLOL
     Dosage: 50 MG, 1X/DAY
     Route: 048

REACTIONS (5)
  - Agranulocytosis [Recovered/Resolved]
  - Haemoptysis [Recovered/Resolved]
  - Drug interaction [Unknown]
  - Zygomycosis [Recovering/Resolving]
  - Agranulocytosis [Recovered/Resolved]

NARRATIVE: CASE EVENT DATE: 20141206
